FAERS Safety Report 10096674 (Version 1)
Quarter: 2014Q2

REPORT INFORMATION
  Report Type: Report from Study
  Country: US (occurrence: US)
  Receive Date: 20140422
  Receipt Date: 20140422
  Transmission Date: 20141212
  Serious: Yes (Other)
  Sender: FDA-Public Use
  Company Number: PHEH2014US007781

PATIENT
  Age: 49 Year
  Sex: Male

DRUGS (3)
  1. TASIGNA [Suspect]
     Indication: METASTASES TO LIVER
     Dosage: 400 MG, BID
     Route: 048
     Dates: start: 20140227, end: 20140416
  2. TASIGNA [Suspect]
     Indication: OFF LABEL USE
  3. SYNTHROID [Concomitant]

REACTIONS (1)
  - Hepatic lesion [Unknown]
